FAERS Safety Report 9811215 (Version 1)
Quarter: 2014Q1

REPORT INFORMATION
  Report Type: Spontaneous
  Country: US (occurrence: US)
  Receive Date: 20140110
  Receipt Date: 20140110
  Transmission Date: 20141002
  Serious: Yes (Life-Threatening, Other)
  Sender: FDA-Public Use
  Company Number: US-SANOFI-AVENTIS-2013SA016386

PATIENT
  Age: 50 Year
  Sex: Female
  Weight: 105 kg

DRUGS (17)
  1. CLOPIDOGREL BISULFATE [Suspect]
     Indication: ACUTE CORONARY SYNDROME
     Route: 048
     Dates: start: 20120103, end: 20120103
  2. CLOPIDOGREL BISULFATE [Suspect]
     Indication: ACUTE CORONARY SYNDROME
     Route: 048
     Dates: start: 20120104
  3. ASPIRIN [Suspect]
     Indication: ACUTE CORONARY SYNDROME
     Route: 048
  4. ASPIRIN [Suspect]
     Indication: ACUTE CORONARY SYNDROME
     Route: 048
     Dates: start: 20120103, end: 20120103
  5. ASPIRIN [Suspect]
     Indication: ACUTE CORONARY SYNDROME
     Route: 048
     Dates: start: 20120104
  6. HEPARIN SODIUM [Suspect]
     Indication: ACUTE CORONARY SYNDROME
     Route: 042
     Dates: start: 20120103, end: 20120103
  7. ENOXAPARIN [Concomitant]
     Route: 040
     Dates: start: 20120103, end: 20120103
  8. ENOXAPARIN [Concomitant]
     Route: 058
     Dates: start: 20120103, end: 20120103
  9. ACETAMINOPHEN [Concomitant]
     Dates: start: 20120103, end: 20120107
  10. FLUOXETINE [Concomitant]
     Dates: start: 20120103, end: 20120103
  11. FAMOTIDINE [Concomitant]
     Dates: start: 20120103, end: 20120107
  12. FUROSEMIDE [Concomitant]
     Dates: start: 20120102, end: 20120102
  13. FUROSEMIDE [Concomitant]
     Dates: start: 20120103, end: 20120103
  14. METOPROLOL [Concomitant]
     Dates: start: 20120103, end: 20120103
  15. OXYBUTYNIN [Concomitant]
     Dates: start: 20120103, end: 20120103
  16. POTASSIUM CHLORIDE [Concomitant]
     Dates: start: 20120103, end: 20120105
  17. INSULIN, REGULAR [Concomitant]
     Dosage: DOSE:11.5 UNIT(S)
     Dates: start: 20120103, end: 20120106

REACTIONS (1)
  - Catheter site haemorrhage [Recovered/Resolved]
